FAERS Safety Report 13089111 (Version 1)
Quarter: 2017Q1

REPORT INFORMATION
  Report Type: Spontaneous
  Country: US (occurrence: US)
  Receive Date: 20170105
  Receipt Date: 20170105
  Transmission Date: 20170428
  Serious: No
  Sender: FDA-Public Use
  Company Number: US-PERRIGO-16US018828

PATIENT
  Age: 55 Year
  Sex: Female
  Weight: 68.27 kg

DRUGS (1)
  1. GUAIFENESIN. [Suspect]
     Active Substance: GUAIFENESIN
     Indication: FIBROMYALGIA
     Dosage: 600 MG, 6 TIMES DAILY
     Route: 048
     Dates: start: 20111123, end: 201604

REACTIONS (3)
  - Off label use [Recovered/Resolved]
  - Overdose [Recovered/Resolved]
  - Incorrect drug administration duration [Recovered/Resolved]

NARRATIVE: CASE EVENT DATE: 20111123
